FAERS Safety Report 8830464 (Version 1)
Quarter: 2012Q4

REPORT INFORMATION
  Report Type: 
  Country: ES (occurrence: ES)
  Receive Date: 20121009
  Receipt Date: 20121009
  Transmission Date: 20130627
  Serious: Yes (Hospitalization)
  Sender: FDA-Public Use
  Company Number: ES-BAYER-2012-104619

PATIENT
  Age: 37 Year
  Sex: Female

DRUGS (1)
  1. INTERFERON BETA - 1B [Suspect]
     Indication: MULTIPLE SCLEROSIS RELAPSE

REACTIONS (12)
  - Thrombotic microangiopathy [None]
  - Renal failure acute [Recovering/Resolving]
  - Hypertension [Recovering/Resolving]
  - Arthralgia [None]
  - Inflammation [Recovering/Resolving]
  - Renal tubular atrophy [Recovering/Resolving]
  - Nausea [Recovering/Resolving]
  - Vomiting [Recovering/Resolving]
  - Fatigue [Recovering/Resolving]
  - Proteinuria [Recovering/Resolving]
  - Oedema peripheral [Recovering/Resolving]
  - Renal injury [Recovering/Resolving]
